FAERS Safety Report 5328046-X (Version None)
Quarter: 2007Q2

REPORT INFORMATION
  Report Type: 
  Country: None (occurrence: None)
  Receive Date: 20070514
  Receipt Date: 20070502
  Transmission Date: 20071010
  Serious: Yes (Hospitalization)
  Sender: FDA-Public Use
  Company Number: GXKR2007US04007

PATIENT
  Age: 15 Year
  Sex: Female

DRUGS (4)
  1. CEFUROXIME [Suspect]
     Indication: PROPHYLAXIS
     Dosage: INTRAVENOUS
     Route: 042
  2. IBUPROFEN [Suspect]
  3. CIPROFLOXACIN [Suspect]
  4. SULFAMETHOXAZOLE + TRIMETHOPRIM [Concomitant]

REACTIONS (6)
  - HAEMODIALYSIS [None]
  - KIDNEY ENLARGEMENT [None]
  - NEPHRITIS INTERSTITIAL [None]
  - NEPHROPATHY TOXIC [None]
  - RENAL FAILURE ACUTE [None]
  - URINARY TRACT INFECTION [None]
